FAERS Safety Report 20092073 (Version 3)
Quarter: 2021Q4

REPORT INFORMATION
  Report Type: Report from Study
  Country: AT (occurrence: None)
  Receive Date: 20211119
  Receipt Date: 20211222
  Transmission Date: 20220303
  Serious: Yes (Hospitalization)
  Sender: FDA-Public Use
  Company Number: AT-Eisai Medical Research-EC-2021-103196

PATIENT
  Age: 84 Year
  Sex: Male
  Weight: 80 kg

DRUGS (10)
  1. LENVATINIB [Suspect]
     Active Substance: LENVATINIB
     Indication: Hepatocellular carcinoma
     Dosage: DOSE AND FREQUENCY UNKNOWN
     Route: 048
     Dates: start: 20211008, end: 20211015
  2. PANTOPRAZOLE SODIUM [Concomitant]
     Active Substance: PANTOPRAZOLE SODIUM
     Indication: Gastritis prophylaxis
     Dosage: FREQUENCY UNKNOWN
     Route: 048
     Dates: start: 202107
  3. AMLOVAS [Concomitant]
     Indication: Hypertension
     Dosage: 10/160 MG
     Route: 048
     Dates: start: 202107
  4. VALSARTAN [Concomitant]
     Active Substance: VALSARTAN
     Indication: Hypertension
     Dosage: FREQUENCY UNKNOWN
     Route: 048
     Dates: start: 2014
  5. METFORMIN [Concomitant]
     Active Substance: METFORMIN HYDROCHLORIDE
     Indication: Diabetes mellitus
     Dosage: FREQUENCY UNKNOWN
     Route: 048
     Dates: start: 202107
  6. URSODIOL [Concomitant]
     Active Substance: URSODIOL
     Indication: Hypertension
     Dosage: FREQUENCY UNKNOWN
     Route: 048
     Dates: start: 202107
  7. URSODIOL [Concomitant]
     Active Substance: URSODIOL
     Indication: Bile duct stone
  8. BISOPROLOL FUMARATE [Concomitant]
     Active Substance: BISOPROLOL FUMARATE
     Indication: Hypertension
     Route: 048
     Dates: start: 202107
  9. FUROSEMIDE\SPIRONOLACTONE [Concomitant]
     Active Substance: FUROSEMIDE\SPIRONOLACTONE
     Indication: Cardiomyopathy
     Dosage: 20/50 MG
     Route: 048
     Dates: start: 20211003, end: 20211015
  10. AUGMENTIN [Concomitant]
     Active Substance: AMOXICILLIN\CLAVULANATE POTASSIUM
     Indication: Antibiotic prophylaxis
     Dates: start: 20211004, end: 20211015

REACTIONS (6)
  - General physical health deterioration [Recovered/Resolved]
  - Cholangitis [Recovered/Resolved]
  - Decreased appetite [Recovered/Resolved]
  - Pain [Recovered/Resolved]
  - Nausea [Recovered/Resolved]
  - Urinary tract infection [Recovered/Resolved]

NARRATIVE: CASE EVENT DATE: 20211011
